FAERS Safety Report 17495853 (Version 1)
Quarter: 2020Q1

REPORT INFORMATION
  Report Type: Spontaneous
  Country: FR (occurrence: FR)
  Receive Date: 20200304
  Receipt Date: 20200304
  Transmission Date: 20200409
  Serious: Yes (Life-Threatening)
  Sender: FDA-Public Use
  Company Number: FR-PFIZER INC-2020094571

PATIENT
  Age: 61 Year
  Sex: Female
  Weight: 75 kg

DRUGS (2)
  1. DALACINE [Suspect]
     Active Substance: CLINDAMYCIN
     Indication: DERMO-HYPODERMITIS
     Dosage: UNK
     Route: 042
     Dates: start: 20200114, end: 20200114
  2. DALACINE [Suspect]
     Active Substance: CLINDAMYCIN
     Indication: DERMO-HYPODERMITIS
     Dosage: UNK
     Route: 048
     Dates: start: 20200114, end: 20200116

REACTIONS (5)
  - Pruritus [Recovering/Resolving]
  - Off label use [Unknown]
  - Product use in unapproved indication [Unknown]
  - Liver function test abnormal [Recovering/Resolving]
  - Renal failure [Recovering/Resolving]

NARRATIVE: CASE EVENT DATE: 20200114
